FAERS Safety Report 8426497-8 (Version None)
Quarter: 2012Q2

REPORT INFORMATION
  Report Type: 
  Country: None (occurrence: None)
  Receive Date: 20120323
  Receipt Date: 20110906
  Transmission Date: 20120825
  Serious: Yes (Other)
  Sender: FDA-Public Use
  Company Number: 163-21880-11080571

PATIENT
  Age: 71 Year
  Sex: Female
  Weight: 86.2 kg

DRUGS (3)
  1. REVLIMID [Suspect]
     Indication: REFRACTORY ANAEMIA
     Dosage: 5 MG, 1 IN 1 D, PO
     Route: 048
     Dates: start: 20100617
  2. REVLIMID [Suspect]
     Indication: REFRACTORY ANAEMIA
     Dosage: 5 MG, 1 IN 1 D, PO
     Route: 048
     Dates: start: 20100901
  3. ASPIRIN [Concomitant]

REACTIONS (2)
  - DEEP VEIN THROMBOSIS [None]
  - PULMONARY EMBOLISM [None]
